FAERS Safety Report 24719516 (Version 1)
Quarter: 2024Q4

REPORT INFORMATION
  Report Type: Spontaneous
  Country: FR (occurrence: FR)
  Receive Date: 20241211
  Receipt Date: 20241211
  Transmission Date: 20250114
  Serious: Yes (Hospitalization, Disabling)
  Sender: ABBVIE
  Company Number: None

PATIENT
  Age: 41 Year
  Sex: Male
  Weight: 32 kg

DRUGS (11)
  1. HUMIRA [Suspect]
     Active Substance: ADALIMUMAB
     Indication: Crohn^s disease
     Dosage: TIME INTERVAL: 1 TOTAL
     Route: 058
     Dates: start: 20240109, end: 20240109
  2. HUMIRA [Suspect]
     Active Substance: ADALIMUMAB
     Dosage: TIME INTERVAL: 1 TOTAL
     Route: 058
     Dates: start: 20231226, end: 20231226
  3. HUMIRA [Suspect]
     Active Substance: ADALIMUMAB
     Dosage: TIME INTERVAL: 1 TOTAL
     Route: 058
     Dates: start: 20231212, end: 20231212
  4. HUMIRA [Suspect]
     Active Substance: ADALIMUMAB
     Route: 058
  5. ZOPICLONE [Concomitant]
     Active Substance: ZOPICLONE
     Indication: Sleep disorder
     Route: 048
  6. PREDNISOLONE ACETATE [Concomitant]
     Active Substance: PREDNISOLONE ACETATE
     Indication: Antiinflammatory therapy
     Route: 048
  7. PREGABALIN [Concomitant]
     Active Substance: PREGABALIN
     Indication: Neuropathy peripheral
     Dosage: 25 - 0 - 50 MG
     Route: 048
  8. RINVOQ [Concomitant]
     Active Substance: UPADACITINIB
     Indication: Crohn^s disease
     Route: 048
     Dates: start: 20240826, end: 20241115
  9. STELARA [Concomitant]
     Active Substance: USTEKINUMAB
     Indication: Crohn^s disease
     Route: 058
     Dates: start: 202401, end: 20240826
  10. OXYCODONE [Concomitant]
     Active Substance: OXYCODONE
     Indication: Analgesic intervention supportive therapy
     Route: 048
  11. LOVENOX [Concomitant]
     Active Substance: ENOXAPARIN SODIUM
     Indication: Thrombosis prophylaxis
     Dosage: 4000 UI ANTI-XA/0,4 ML, SOLUTION FOR INJECTION IN AMPOULE
     Route: 058

REACTIONS (1)
  - Demyelinating polyneuropathy [Not Recovered/Not Resolved]

NARRATIVE: CASE EVENT DATE: 20231215
